FAERS Safety Report 4846478-0 (Version None)
Quarter: 2005Q4

REPORT INFORMATION
  Report Type: 
  Country: None (occurrence: None)
  Receive Date: 20051201
  Receipt Date: 20051115
  Transmission Date: 20060501
  Serious: Yes (Hospitalization)
  Sender: FDA-Public Use
  Company Number: FR-2005-022909

PATIENT
  Age: 47 Year
  Sex: Female

DRUGS (1)
  1. BETASERON [Suspect]
     Indication: MULTIPLE SCLEROSIS
     Dosage: 8 MIU,  EVERY 2D, SUBCUTANEOUS
     Route: 058
     Dates: start: 20041225

REACTIONS (2)
  - HYPOTHYROIDISM [None]
  - PAPILLARY THYROID CANCER [None]
